FAERS Safety Report 6325225-X (Version None)
Quarter: 2009Q3

REPORT INFORMATION
  Report Type: 
  Country: None (occurrence: None)
  Receive Date: 20090824
  Receipt Date: 20090820
  Transmission Date: 20100115
  Serious: Yes (Hospitalization)
  Sender: FDA-Public Use
  Company Number: PHEH2009US08986

PATIENT
  Sex: Female

DRUGS (2)
  1. DIOVAN [Suspect]
     Dosage: 80 MG, UNK
  2. ACTONEL [Concomitant]
     Dosage: UNK

REACTIONS (1)
  - ANAEMIA HAEMOLYTIC AUTOIMMUNE [None]
